FAERS Safety Report 14833339 (Version 1)
Quarter: 2018Q2

REPORT INFORMATION
  Report Type: Spontaneous
  Country: US (occurrence: US)
  Receive Date: 20180411
  Receipt Date: 20180411
  Transmission Date: 20180711
  Serious: Yes (Life-Threatening)
  Sender: FDA-Public Use
  Company Number: None

PATIENT
  Age: 62 Year
  Sex: Male
  Weight: 68.8 kg

DRUGS (5)
  1. OLARATUMAB [Suspect]
     Active Substance: OLARATUMAB
     Indication: SCHWANNOMA
     Route: 042
     Dates: start: 20180410
  2. DIPHENHYDRAMINE 25 MG [Concomitant]
     Dates: start: 20180410
  3. PALONSETRON 0.25 MG [Concomitant]
     Dates: start: 20180410
  4. FOSAPREPITANT 150 MG [Concomitant]
     Dates: start: 20180410
  5. DEXAMETHASONE 10 MG [Concomitant]
     Dates: start: 20180410

REACTIONS (6)
  - Pulse absent [None]
  - Pulseless electrical activity [None]
  - Dyspnoea [None]
  - Hypotension [None]
  - Bradycardia [None]
  - Respiratory distress [None]

NARRATIVE: CASE EVENT DATE: 20180411
